FAERS Safety Report 23225343 (Version 2)
Quarter: 2024Q1

REPORT INFORMATION
  Report Type: Report from Study
  Country: DE (occurrence: DE)
  Receive Date: 20231124
  Receipt Date: 20240311
  Transmission Date: 20240410
  Serious: Yes (Hospitalization, Other)
  Sender: FDA-Public Use
  Company Number: DE-BAXTER-2023BAX036281

PATIENT
  Age: 59 Year
  Sex: Female
  Weight: 43 kg

DRUGS (9)
  1. AMINO ACIDS\DEXTROSE\ELECTROLYTES NOS\SOYBEAN OIL [Suspect]
     Active Substance: AMINO ACIDS\DEXTROSE\ELECTROLYTES NOS\SOYBEAN OIL
     Indication: Parenteral nutrition
     Dosage: 1450 MILLILITERS (ML), ONCE DAILY ADMINISTERED VIA CENTRAL VENOUS ROUTE AT AN INFUSION RATE OF 111.5
     Route: 042
     Dates: start: 20230602, end: 20231119
  2. AMINO ACIDS\DEXTROSE\ELECTROLYTES NOS\SOYBEAN OIL [Suspect]
     Active Substance: AMINO ACIDS\DEXTROSE\ELECTROLYTES NOS\SOYBEAN OIL
     Indication: Parenteral nutrition
     Dosage: 1450 MILLILITER (ML) AT AN UNSPECIFIED FREQUENCY ADMINISTERED VIA CENTRAL VENOUS ROUTE
     Route: 042
  3. CERNEVIT [Suspect]
     Active Substance: VITAMINS
     Indication: Parenteral nutrition
     Dosage: 750 MILLIGRAM (MG) AT AN UNSPECIFIED FREQUENCY ADMINISTERED VIA CENTRAL VENOUS ROUTE
     Route: 042
  4. ELECTROLYTES NOS\MINERALS [Suspect]
     Active Substance: ELECTROLYTES NOS\MINERALS
     Indication: Parenteral nutrition
     Dosage: 10 MILLILITERS (ML), ONCE DAILY ADMINISTERED VIA CENTRAL VENOUS ROUTE AT AN INFUSION RATE OF 111.5 M
     Route: 042
     Dates: start: 20230602, end: 20231012
  5. ELECTROLYTES NOS\MINERALS [Suspect]
     Active Substance: ELECTROLYTES NOS\MINERALS
     Dosage: 10 MILLILITERS (ML) AT AN UNSPECIFIED FREQUENCY ADMINISTERED VIA CENTRAL VENOUS ROUTE (MANUFACTURER:
     Route: 042
  6. MINERALS\VITAMINS [Suspect]
     Active Substance: MINERALS\VITAMINS
     Indication: Parenteral nutrition
     Dosage: 750 MILLIGRAMS (MG), ONCE DAILY ADMINISTERED VIA CENTRAL VENOUS ROUTE AT AN INFUSION RATE OF 111.5 M
     Route: 042
     Dates: start: 20230602, end: 20231012
  7. VITAMINS [Suspect]
     Active Substance: VITAMINS
     Indication: Parenteral nutrition
     Dosage: 10 MILLILITERS (ML), ONCE DAILY ADMINISTERED VIA CENTRAL VENOUS ROUTE AT AN INFUSION RATE OF 111.5 M
     Route: 042
     Dates: start: 20231012, end: 20231119
  8. ELECTROLYTES NOS\MINERALS [Suspect]
     Active Substance: ELECTROLYTES NOS\MINERALS
     Indication: Parenteral nutrition
     Dosage: 10 MILLILITERS (ML), ONCE DAILY ADMINISTERED VIA CENTRAL VENOUS ROUTE AT AN INFUSION RATE OF 111.5 M
     Route: 042
     Dates: start: 20231012, end: 20231119
  9. UNSPECIFIED INGREDIENT [Suspect]
     Active Substance: UNSPECIFIED INGREDIENT
     Dosage: UNK
     Route: 065

REACTIONS (3)
  - Pain [Unknown]
  - Syncope [Unknown]
  - Extravasation [Recovered/Resolved]

NARRATIVE: CASE EVENT DATE: 20231119
